FAERS Safety Report 14156799 (Version 1)
Quarter: 2017Q4

REPORT INFORMATION
  Report Type: Spontaneous
  Country: EE (occurrence: UA)
  Receive Date: 20171103
  Receipt Date: 20171103
  Transmission Date: 20180321
  Serious: Yes (Other)
  Sender: FDA-Public Use
  Company Number: EE-BAYER-2017-206810

PATIENT
  Age: 64 Year
  Sex: Male

DRUGS (1)
  1. ASPIRIN CARDIO 100 MG [Suspect]
     Active Substance: ASPIRIN
     Dosage: UNK

REACTIONS (5)
  - Erosive oesophagitis [None]
  - Diaphragmatic hernia [None]
  - Erosive duodenitis [None]
  - Gastrooesophageal reflux disease [None]
  - Ulcerative gastritis [None]
